FAERS Safety Report 8491514-6 (Version None)
Quarter: 2012Q3

REPORT INFORMATION
  Report Type: 
  Country: None (occurrence: None)
  Receive Date: 20120706
  Receipt Date: 20120627
  Transmission Date: 20120928
  Serious: Yes (Other)
  Sender: FDA-Public Use
  Company Number: US-JNJFOC-20120700731

PATIENT
  Sex: Male
  Weight: 74.84 kg

DRUGS (2)
  1. ZYTIGA [Suspect]
     Indication: PROSTATE CANCER
     Route: 048
     Dates: start: 20120401
  2. PREDNISONE TAB [Concomitant]
     Indication: PROSTATE CANCER
     Route: 048
     Dates: start: 20120401

REACTIONS (2)
  - PROSTATIC SPECIFIC ANTIGEN INCREASED [None]
  - BLOOD ALKALINE PHOSPHATASE INCREASED [None]
